FAERS Safety Report 8215617-6 (Version None)
Quarter: 2012Q1

REPORT INFORMATION
  Report Type: 
  Country: None (occurrence: None)
  Receive Date: 20120316
  Receipt Date: 20120306
  Transmission Date: 20120608
  Serious: Yes (Disabling, Other)
  Sender: FDA-Public Use
  Company Number: RO-ELI_LILLY_AND_COMPANY-RO201201009450

PATIENT
  Sex: Male
  Weight: 73 kg

DRUGS (2)
  1. ALIMTA [Suspect]
     Dosage: 500 MG/M2, EVERY 3WEEKS
     Route: 042
     Dates: start: 20110507
  2. DHC [Concomitant]
     Indication: PAIN
     Dosage: 60 MG, BID
     Dates: start: 20100101

REACTIONS (2)
  - HERPES ZOSTER [None]
  - IMMUNOSUPPRESSION [None]
